FAERS Safety Report 20491646 (Version 1)
Quarter: 2022Q1

REPORT INFORMATION
  Report Type: Spontaneous
  Country: US (occurrence: US)
  Receive Date: 20220218
  Receipt Date: 20220218
  Transmission Date: 20220423
  Serious: Yes (Death, Hospitalization)
  Sender: FDA-Public Use
  Company Number: US-TEVA-2022-US-2008456

PATIENT
  Age: 73 Year
  Sex: Female
  Weight: 92.53 kg

DRUGS (3)
  1. LETROZOLE [Suspect]
     Active Substance: LETROZOLE
     Dosage: 1 TABLET/DAY
     Dates: start: 20211217, end: 20220104
  2. IBRANCE [Suspect]
     Active Substance: PALBOCICLIB
     Indication: Extramammary Paget^s disease
     Dosage: 125 MILLIGRAM DAILY; 1 TABLET, 125MG/DAY FOR 21 DAYS, THEN OFF 7 DAYS, THEN REPEAT
     Route: 065
     Dates: start: 20211217, end: 20220104
  3. DEXAMETHASONE [Concomitant]
     Active Substance: DEXAMETHASONE
     Route: 065
     Dates: start: 20211217, end: 20220104

REACTIONS (12)
  - Septic shock [Fatal]
  - Escherichia infection [Fatal]
  - Renal impairment [Unknown]
  - Neutropenia [Unknown]
  - Fatigue [Unknown]
  - Dyspnoea [Unknown]
  - Blood test abnormal [Unknown]
  - Pain in extremity [Unknown]
  - Peripheral swelling [Unknown]
  - Pain [Unknown]
  - Thrombosis [Unknown]
  - Fasciotomy [Unknown]

NARRATIVE: CASE EVENT DATE: 20211230
